FAERS Safety Report 6440795-9 (Version None)
Quarter: 2009Q4

REPORT INFORMATION
  Report Type: 
  Country: None (occurrence: None)
  Receive Date: 20091116
  Receipt Date: 20091106
  Transmission Date: 20100525
  Serious: Yes (Hospitalization)
  Sender: FDA-Public Use
  Company Number: JP-JNJFOC-20091103712

PATIENT
  Age: 80 Year
  Sex: Male

DRUGS (2)
  1. CRAVIT [Suspect]
     Indication: URINARY TRACT INFECTION
     Route: 048
     Dates: start: 20090817, end: 20090818
  2. SOLIGEN [Concomitant]
     Route: 042

REACTIONS (3)
  - EMPHYSEMA [None]
  - HYPONATRAEMIA [None]
  - PYREXIA [None]
